FAERS Safety Report 18133130 (Version 2)
Quarter: 2020Q4

REPORT INFORMATION
  Report Type: Spontaneous
  Country: SE (occurrence: SE)
  Receive Date: 20200811
  Receipt Date: 20201006
  Transmission Date: 20210113
  Serious: Yes (Death, Other)
  Sender: FDA-Public Use
  Company Number: SE-JNJFOC-20200804041

PATIENT
  Age: 70 Year
  Sex: Male

DRUGS (5)
  1. SIMPONI [Suspect]
     Active Substance: GOLIMUMAB
     Indication: PSORIATIC ARTHROPATHY
     Route: 058
     Dates: start: 2015, end: 2020
  2. SIMVASTATIN. [Concomitant]
     Active Substance: SIMVASTATIN
  3. SELOKENZOC [Concomitant]
     Active Substance: METOPROLOL SUCCINATE
  4. AMLODIPINE [Concomitant]
     Active Substance: AMLODIPINE BESYLATE
  5. ENALAPRIL OCMP [Concomitant]
     Dosage: STYRKA 20/12,5 MG

REACTIONS (4)
  - Gastric perforation [Fatal]
  - Intestinal ischaemia [Fatal]
  - Diarrhoea [Unknown]
  - Peritonitis [Fatal]

NARRATIVE: CASE EVENT DATE: 20200308
